FAERS Safety Report 6027518-2 (Version None)
Quarter: 2008Q4

REPORT INFORMATION
  Report Type: 
  Country: None (occurrence: None)
  Receive Date: 20081222
  Receipt Date: 20080923
  Transmission Date: 20090506
  Serious: No
  Sender: FDA-Public Use
  Company Number: US-WYE-H05631308

PATIENT
  Age: 26 Year
  Sex: Male
  Weight: 80.81 kg

DRUGS (1)
  1. PRISTIQ [Suspect]
     Indication: DEPRESSION
     Dosage: 50 MG 1X PER 1 DAY, ORAL
     Route: 048
     Dates: start: 20080808, end: 20080811

REACTIONS (7)
  - CONFUSIONAL STATE [None]
  - EMOTIONAL DISORDER [None]
  - FATIGUE [None]
  - HALLUCINATION [None]
  - NAUSEA [None]
  - NIGHTMARE [None]
  - THINKING ABNORMAL [None]
